FAERS Safety Report 7750928-X (Version None)
Quarter: 2011Q3

REPORT INFORMATION
  Report Type: 
  Country: None (occurrence: None)
  Receive Date: 20110912
  Receipt Date: 20110519
  Transmission Date: 20111222
  Serious: No
  Sender: FDA-Public Use
  Company Number: USA/USA/11/0018372

PATIENT
  Sex: Female

DRUGS (1)
  1. NAPROXEN [Suspect]
     Indication: PRODUCT USED FOR UNKNOWN INDICATION
     Dosage: 4 DOSAGE FORMS, ORAL
     Route: 048
     Dates: start: 20110519

REACTIONS (2)
  - NO ADVERSE EVENT [None]
  - ACCIDENTAL EXPOSURE [None]
